FAERS Safety Report 20526953 (Version 1)
Quarter: 2022Q1

REPORT INFORMATION
  Report Type: Spontaneous
  Country: US (occurrence: None)
  Receive Date: 20220228
  Receipt Date: 20220228
  Transmission Date: 20220424
  Serious: Yes (Death)
  Sender: FDA-Public Use
  Company Number: None

PATIENT
  Age: 74 Year
  Sex: Female

DRUGS (7)
  1. ANASTROZOLE [Suspect]
     Active Substance: ANASTROZOLE
     Indication: Breast cancer female
     Route: 048
     Dates: start: 20200624, end: 20210204
  2. AZELASTINE SPR [Concomitant]
  3. BENADRYL ALG TAB [Concomitant]
  4. DILTIAZEM CAP [Concomitant]
  5. LOSARTAN POT TAB [Concomitant]
  6. OFEV CAP [Concomitant]
  7. OMEPRAZOLE TAB [Concomitant]

REACTIONS (1)
  - Death [None]

NARRATIVE: CASE EVENT DATE: 20210204
